FAERS Safety Report 10598348 (Version 1)
Quarter: 2014Q4

REPORT INFORMATION
  Report Type: Spontaneous
  Country: US (occurrence: US)
  Receive Date: 20141121
  Receipt Date: 20141121
  Transmission Date: 20150529
  Serious: No
  Sender: FDA-Public Use
  Company Number: US-MYLANLABS-2014M1005716

PATIENT
  Age: 54 Year
  Sex: Female
  Weight: 50.79 kg

DRUGS (1)
  1. TOLTERODINE TARTRATE EXTENDED-RELEASE CAPSULES [Suspect]
     Active Substance: TOLTERODINE TARTRATE
     Indication: HYPERTONIC BLADDER
     Dosage: 2 MG, ONCE
     Route: 048
     Dates: start: 20140919, end: 20140919

REACTIONS (1)
  - Urethral pain [Recovered/Resolved]

NARRATIVE: CASE EVENT DATE: 20140919
